FAERS Safety Report 10511356 (Version 1)
Quarter: 2014Q4

REPORT INFORMATION
  Report Type: Spontaneous
  Country: PT (occurrence: None)
  Receive Date: 20141008
  Receipt Date: 20141008
  Transmission Date: 20150528
  Serious: Yes (Hospitalization, Other)
  Sender: FDA-Public Use
  Company Number: 2014/075

PATIENT
  Age: 52 Year
  Sex: Female

DRUGS (3)
  1. IBANDRONATE (NO PREF.NAME [Suspect]
     Active Substance: IBANDRONATE SODIUM
     Indication: OSTEOPENIA
     Route: 048
  2. LISINOPRIL PLUS HYDROCHLOROTHIAZIDE [Concomitant]
  3. OMEPRAZOLE (NO PREF. NAME) [Concomitant]

REACTIONS (1)
  - Colitis ischaemic [None]
